FAERS Safety Report 9180254 (Version 3)
Quarter: 2013Q2

REPORT INFORMATION
  Report Type: Spontaneous
  Country: US (occurrence: US)
  Receive Date: 20130322
  Receipt Date: 20130513
  Transmission Date: 20140414
  Serious: Yes (Hospitalization)
  Sender: FDA-Public Use
  Company Number: US-BIOGENIDEC-2013BI025873

PATIENT
  Age: 36 Year
  Sex: Female
  Weight: 143 kg

DRUGS (15)
  1. TYSABRI [Suspect]
     Indication: MULTIPLE SCLEROSIS
     Route: 042
     Dates: start: 20111223
  2. METHYLPHENIDATE [Concomitant]
     Route: 048
  3. MECLIZINE [Concomitant]
     Route: 048
  4. CYCLOBENZAPRINE [Concomitant]
     Route: 048
  5. OXCARBAZEPINE [Concomitant]
     Route: 048
  6. HYDROCODONE ACETAMINOPHEN [Concomitant]
  7. CYMBALTA [Concomitant]
     Route: 048
  8. CYANOCOBALAMIN [Concomitant]
     Route: 048
  9. DONEPEZIL [Concomitant]
     Route: 048
  10. FUROSEMIDE [Concomitant]
     Route: 048
  11. FERROUS SULFATE [Concomitant]
     Route: 048
  12. CHOLECALCIFEROL [Concomitant]
     Route: 048
  13. NAPROXEN [Concomitant]
     Route: 048
  14. DIPHENHYDRAMINE [Concomitant]
     Route: 048
  15. CALCIUM CARBONATE [Concomitant]
     Route: 048

REACTIONS (4)
  - Oedema [Unknown]
  - Dyspnoea [Unknown]
  - Chest pain [Unknown]
  - Hypokalaemia [Not Recovered/Not Resolved]
